FAERS Safety Report 20438364 (Version 1)
Quarter: 2022Q1

REPORT INFORMATION
  Report Type: Spontaneous
  Country: US (occurrence: US)
  Receive Date: 20220207
  Receipt Date: 20220207
  Transmission Date: 20220423
  Serious: Yes (Other)
  Sender: FDA-Public Use
  Company Number: US-PFIZER INC-202200166699

PATIENT
  Age: 61 Year
  Sex: Female
  Weight: 64.86 kg

DRUGS (2)
  1. VENLAFAXINE HCL [Suspect]
     Active Substance: VENLAFAXINE HYDROCHLORIDE
     Dosage: 150 MG, 1X/DAY
     Dates: start: 202111
  2. VENLAFAXINE HCL [Suspect]
     Active Substance: VENLAFAXINE HYDROCHLORIDE
     Dosage: 75 MG, 1X/DAY
     Dates: start: 202111

REACTIONS (12)
  - Suicidal ideation [Unknown]
  - Homicidal ideation [Unknown]
  - Drug ineffective [Unknown]
  - Intentional product misuse [Unknown]
  - Off label use [Unknown]
  - Malaise [Unknown]
  - Tremor [Unknown]
  - Headache [Unknown]
  - Somnolence [Unknown]
  - Anxiety [Unknown]
  - Nausea [Unknown]
  - Feeling abnormal [Unknown]
